FAERS Safety Report 8936537 (Version 1)
Quarter: 2012Q4

REPORT INFORMATION
  Report Type: 
  Country: US (occurrence: US)
  Receive Date: 20121130
  Receipt Date: 20121130
  Transmission Date: 20130627
  Serious: Yes (Hospitalization, Other)
  Sender: FDA-Public Use
  Company Number: US-PFIZER INC-2012297629

PATIENT
  Age: 78 Year
  Sex: Female
  Weight: 81.63 kg

DRUGS (15)
  1. REVATIO [Suspect]
     Indication: PULMONARY HYPERTENSION
     Dosage: 20 mg, 3x/day
     Route: 048
  2. ASPIRIN [Concomitant]
     Dosage: 81 mg, daily
  3. CRESTOR [Concomitant]
     Dosage: 10 mg, daily
  4. FUROSEMIDE [Concomitant]
     Dosage: 40 mg, daily
  5. GLYBURIDE [Concomitant]
     Dosage: 2.5 mg, daily
  6. LETAIRIS [Concomitant]
     Dosage: 5 mg, daily
  7. LISINOPRIL [Concomitant]
     Dosage: 2.5 mg, daily
  8. CALCIUM [Concomitant]
     Dosage: 500 mg, daily
  9. TOPROL XL [Concomitant]
     Dosage: 50 mg, daily
  10. VITAMIN D [Concomitant]
     Dosage: 50000 IU, 2x/week
  11. VITAMIN C [Concomitant]
     Dosage: 500 mg, daily
  12. WELLBUTRIN XL [Concomitant]
     Dosage: 300 mg, daily
  13. FLUOXETINE [Concomitant]
     Dosage: 20 mg, daily
  14. WARFARIN [Concomitant]
     Dosage: 2mg and 4mg on the alternate days
  15. POTASSIUM CHLORIDE [Concomitant]
     Dosage: UNK, 2x/day

REACTIONS (3)
  - Hip fracture [Recovering/Resolving]
  - Fall [Unknown]
  - Cataract [Recovered/Resolved]
